FAERS Safety Report 4931726-9 (Version None)
Quarter: 2006Q1

REPORT INFORMATION
  Report Type: 
  Country: None (occurrence: None)
  Receive Date: 20060303
  Receipt Date: 20060221
  Transmission Date: 20060701
  Serious: Yes (Other)
  Sender: FDA-Public Use
  Company Number: US-JNJFOC-20050805259

PATIENT
  Sex: Female

DRUGS (4)
  1. EXTRA STRENGTH TYLENOL [Suspect]
     Indication: PAIN
  2. EXTRA STRENGTH TYLENOL [Suspect]
  3. REMERON [Concomitant]
  4. ATIVAN [Concomitant]

REACTIONS (5)
  - CONVULSION [None]
  - DERMATITIS BULLOUS [None]
  - OPEN WOUND [None]
  - PHARMACEUTICAL PRODUCT COMPLAINT [None]
  - SALIVARY HYPERSECRETION [None]
